FAERS Safety Report 16581870 (Version 4)
Quarter: 2021Q2

REPORT INFORMATION
  Report Type: Report from Study
  Country: AT (occurrence: AT)
  Receive Date: 20190716
  Receipt Date: 20210622
  Transmission Date: 20210716
  Serious: Yes (Hospitalization)
  Sender: FDA-Public Use
  Company Number: AT-CELLTRION INC.-2019AT022614

PATIENT

DRUGS (21)
  1. DAFLON [Concomitant]
     Indication: OEDEMA PERIPHERAL
  2. XANOR [Concomitant]
     Active Substance: ALPRAZOLAM
     Dosage: UNK
     Dates: start: 20180615
  3. NOVALGIN (AUSTRIA) [Concomitant]
     Dosage: UNK
     Dates: start: 20180807
  4. TRASTUZUMAB (UNKNOWN) [Suspect]
     Active Substance: TRASTUZUMAB
     Indication: BREAST CANCER METASTATIC
     Dosage: 8 MG/KG, EVERY 3 WEEKS
     Route: 042
     Dates: start: 20180731, end: 20180731
  5. ANASTROZOLE. [Suspect]
     Active Substance: ANASTROZOLE
     Indication: BREAST CANCER METASTATIC
     Dosage: 1 MG, QD (MOST RECENT DOSE 05/DEC/2018)
     Route: 048
     Dates: start: 20181009
  6. TRASTUZUMAB (UNKNOWN) [Suspect]
     Active Substance: TRASTUZUMAB
     Dosage: 6 MG/KG, EVERY 3 WEEKS; (MOST RECENT DOSE PRIOR TO THE EVENT: 14/DEC/2018)
     Route: 042
     Dates: start: 20180821
  7. EXEMESTANE. [Suspect]
     Active Substance: EXEMESTANE
     Indication: BREAST CANCER METASTATIC
     Dosage: EVERY 1 DAY, IN MAY/2019, MOST RECENT DOSE
     Route: 048
     Dates: start: 201904
  8. PERTUZUMAB. [Suspect]
     Active Substance: PERTUZUMAB
     Dosage: 420 MG, EVERY 3 WEEKS (MOST RECENT DOSE PRIOR TO THE EVENT: 06/MAR/2019)
     Route: 042
     Dates: start: 20180821
  9. FENISTIL [Concomitant]
     Active Substance: DIMETHINDENE
     Dosage: UNK
     Dates: start: 20181002, end: 20190401
  10. ZYRTEC [Concomitant]
     Active Substance: CETIRIZINE HYDROCHLORIDE
     Indication: PRURITUS
     Dosage: UNK
     Dates: start: 20181227
  11. LETROZOLE. [Suspect]
     Active Substance: LETROZOLE
     Indication: BREAST CANCER METASTATIC
     Dosage: 2.5 MG, QD (MOST RECENT DOSE ON APR/2019)
     Route: 048
     Dates: start: 20181205
  12. LOVENOX [Concomitant]
     Active Substance: ENOXAPARIN SODIUM
     Dosage: UNK
     Dates: start: 20180828, end: 20190615
  13. TRASTUZUMAB (UNKNOWN) [Suspect]
     Active Substance: TRASTUZUMAB
     Dosage: 312 MG, EVERY 3 WEEKS; MOST RECENT DOSE PRIOR TO THE EVENT: 01/APR/2019
     Route: 042
     Dates: start: 20181205
  14. PACLITAXEL. [Suspect]
     Active Substance: PACLITAXEL
     Indication: BREAST CANCER METASTATIC
     Dosage: 123.18 MG, EVERY 1 WEEK (MOST RECENT DOSE ON 25/SEP/2018)
     Route: 042
     Dates: start: 20180724
  15. PASPERTIN [Concomitant]
     Dosage: UNK
     Dates: start: 20180807
  16. TRITTICO [Concomitant]
     Active Substance: TRAZODONE HYDROCHLORIDE
     Dosage: UNK
     Dates: start: 20180615
  17. PANTOLOC [Concomitant]
     Active Substance: PANTOPRAZOLE SODIUM
  18. PERTUZUMAB. [Suspect]
     Active Substance: PERTUZUMAB
     Indication: BREAST CANCER METASTATIC
     Dosage: 840 MG, EVERY 3 WEEKS
     Route: 042
     Dates: start: 20180731
  19. CIPRALEX [Concomitant]
     Active Substance: ESCITALOPRAM OXALATE
     Dosage: UNK
     Dates: start: 20190515
  20. ULSAL [Concomitant]
     Active Substance: RANITIDINE HYDROCHLORIDE
     Dosage: UNK
     Dates: start: 20181002, end: 20190401
  21. LAEVOLAC [Concomitant]
     Active Substance: LACTULOSE
     Indication: CONSTIPATION
     Dosage: UNK
     Dates: start: 20181227

REACTIONS (5)
  - Vertigo [Recovering/Resolving]
  - Headache [Not Recovered/Not Resolved]
  - Nausea [Recovering/Resolving]
  - Somnolence [Not Recovered/Not Resolved]
  - Rash [Recovering/Resolving]

NARRATIVE: CASE EVENT DATE: 20190415
